FAERS Safety Report 9543239 (Version 2)
Quarter: 2013Q3

REPORT INFORMATION
  Report Type: Spontaneous
  Country: DK (occurrence: DK)
  Receive Date: 20130923
  Receipt Date: 20130923
  Transmission Date: 20140515
  Serious: Yes (Life-Threatening, Other)
  Sender: FDA-Public Use
  Company Number: DK-009507513-2012SP019638

PATIENT
  Age: 30 Year
  Sex: Female

DRUGS (1)
  1. MERCILON [Suspect]
     Indication: CONTRACEPTION
     Dosage: UNK, UNKNOWN
     Route: 048
     Dates: start: 20000613

REACTIONS (3)
  - Breast cancer [Recovering/Resolving]
  - Breast cancer stage II [Recovered/Resolved]
  - Metastases to lymph nodes [Recovered/Resolved]
